FAERS Safety Report 7237092-0 (Version None)
Quarter: 2010Q4

REPORT INFORMATION
  Report Type: 
  Country: None (occurrence: None)
  Receive Date: 20101130
  Receipt Date: 20090806
  Transmission Date: 20110411
  Serious: No
  Sender: FDA-Public Use
  Company Number: 2009SP019177

PATIENT
  Age: 24 Year
  Sex: Female

DRUGS (1)
  1. NUVARING [Suspect]
     Indication: PRODUCT USED FOR UNKNOWN INDICATION
     Dates: start: 20070401

REACTIONS (1)
  - MEDICAL DEVICE DISCOMFORT [None]
